FAERS Safety Report 4426871-0 (Version None)
Quarter: 2004Q3

REPORT INFORMATION
  Report Type: 
  Country: None (occurrence: None)
  Receive Date: 20040811
  Receipt Date: 20040609
  Transmission Date: 20050211
  Serious: Yes (Hospitalization, Other)
  Sender: FDA-Public Use
  Company Number: 2004032371

PATIENT
  Age: 42 Year
  Sex: Female
  Weight: 47.8 kg

DRUGS (11)
  1. ZITHROMAX [Suspect]
     Indication: ACUTE TONSILLITIS
     Dosage: ORAL
     Route: 048
     Dates: start: 20040312, end: 20040314
  2. ISOSORBIDE MONONITRATE [Suspect]
     Indication: ILL-DEFINED DISORDER
     Dosage: ORAL
     Route: 048
     Dates: start: 20040301, end: 20040317
  3. DILTIAZEM HYDROCHLORIDE [Suspect]
     Indication: PRINZMETAL ANGINA
     Dates: start: 20040301, end: 20040317
  4. CANDESARTAN CILEXETIL (CANDESARTAN CILEXETIL) [Suspect]
     Indication: ILL-DEFINED DISORDER
     Dosage: ORAL
     Route: 048
     Dates: start: 20040301, end: 20040317
  5. INDAPAMIDE [Suspect]
     Indication: ILL-DEFINED DISORDER
     Dosage: ORAL
     Route: 048
     Dates: start: 20040301, end: 20040317
  6. NITROGLYCERIN [Suspect]
     Indication: ILL-DEFINED DISORDER
     Dosage: SUBLINGUAL
     Route: 060
     Dates: start: 20040301
  7. LOXOPROFEN SODIUM (LOXOPROFEN SODIUM) [Concomitant]
  8. TELITHROMYCIN (TELITHROMYCIN) [Concomitant]
  9. PIPERACILLIN SODIUM [Concomitant]
  10. FLOMOXEF SODIUM (FLOMOXEF SODIUM) [Concomitant]
  11. CEFEPIME HYDROCHLORIDE (CEFEPIME HYDROCHLORIDE) [Concomitant]

REACTIONS (9)
  - ACUTE TONSILLITIS [None]
  - ANGINA PECTORIS [None]
  - CONJUNCTIVITIS [None]
  - CORNEAL DISORDER [None]
  - LACRIMATION INCREASED [None]
  - PRINZMETAL ANGINA [None]
  - PYREXIA [None]
  - STEVENS-JOHNSON SYNDROME [None]
  - STOMATITIS [None]
